FAERS Safety Report 6291157-9 (Version None)
Quarter: 2009Q3

REPORT INFORMATION
  Report Type: 
  Country: None (occurrence: None)
  Receive Date: 20090730
  Receipt Date: 20090720
  Transmission Date: 20100115
  Serious: Yes (Hospitalization)
  Sender: FDA-Public Use
  Company Number: B0584719A

PATIENT
  Sex: Male

DRUGS (6)
  1. ZIAGEN [Suspect]
     Indication: HIV INFECTION
     Route: 048
     Dates: end: 20090320
  2. ARIXTRA [Suspect]
     Route: 058
     Dates: start: 20090227, end: 20090317
  3. BACTRIM [Suspect]
     Route: 042
     Dates: start: 20090306, end: 20090311
  4. BACTRIM DS [Suspect]
     Route: 048
     Dates: start: 20090312, end: 20090320
  5. TAVANIC [Suspect]
     Route: 048
     Dates: start: 20090227, end: 20090317
  6. EMTRIVA [Suspect]
     Route: 048
     Dates: end: 20090320

REACTIONS (11)
  - ANAEMIA [None]
  - BONE MARROW FAILURE [None]
  - CHILLS [None]
  - DECREASED APPETITE [None]
  - DIARRHOEA [None]
  - HYPERHIDROSIS [None]
  - LUNG DISORDER [None]
  - NEUTROPENIA [None]
  - PLEURISY [None]
  - PYREXIA [None]
  - THROMBOCYTOPENIA [None]
